FAERS Safety Report 10048876 (Version 1)
Quarter: 2014Q1

REPORT INFORMATION
  Report Type: Spontaneous
  Country: US (occurrence: US)
  Receive Date: 20140331
  Receipt Date: 20140331
  Transmission Date: 20141002
  Serious: No
  Sender: FDA-Public Use
  Company Number: US-PFIZER INC-2014087730

PATIENT
  Age: 49 Year
  Sex: Male
  Weight: 86.17 kg

DRUGS (1)
  1. LYRICA [Suspect]
     Dosage: 50 MG, 4X/DAY
     Dates: start: 201402

REACTIONS (2)
  - Bruxism [Unknown]
  - Agitation [Unknown]
